FAERS Safety Report 9644733 (Version 2)
Quarter: 2013Q4

REPORT INFORMATION
  Report Type: Report from Study
  Country: US (occurrence: US)
  Receive Date: 20131025
  Receipt Date: 20131126
  Transmission Date: 20140711
  Serious: Yes (Hospitalization)
  Sender: FDA-Public Use
  Company Number: PHEH2013US022234

PATIENT
  Sex: Female

DRUGS (1)
  1. GLEEVEC [Suspect]
     Indication: ABDOMINAL NEOPLASM
     Dosage: 400 MG,  (ONE TABLET )DAILY
     Route: 048
     Dates: start: 201308

REACTIONS (3)
  - Abscess [Unknown]
  - Gastric disorder [Unknown]
  - Drug ineffective [Unknown]
